FAERS Safety Report 5017997-1 (Version None)
Quarter: 2006Q2

REPORT INFORMATION
  Report Type: 
  Country: None (occurrence: None)
  Receive Date: 20060530
  Receipt Date: 20050322
  Transmission Date: 20061013
  Serious: Yes (Hospitalization)
  Sender: FDA-Public Use
  Company Number: 2005048458

PATIENT
  Age: 53 Year
  Sex: Male
  Weight: 69 kg

DRUGS (5)
  1. LYRICA [Suspect]
     Indication: NEURALGIA
     Dosage: 300 MG (150 MG, 2 IN 1 D), ORAL
     Route: 048
     Dates: start: 20041215
  2. VENLAFAXINE HCL [Concomitant]
  3. ZOPICLONE [Concomitant]
  4. CODEINE PHOSPHATE AND ACETAMINOPHEN [Concomitant]
  5. LANSOPRAZOLE [Concomitant]

REACTIONS (2)
  - AMNESIA [None]
  - LOSS OF CONSCIOUSNESS [None]
